FAERS Safety Report 7729105-4 (Version None)
Quarter: 2011Q3

REPORT INFORMATION
  Report Type: 
  Country: None (occurrence: None)
  Receive Date: 20110906
  Receipt Date: 20110829
  Transmission Date: 20111222
  Serious: Yes (Other)
  Sender: FDA-Public Use
  Company Number: NL-SANOFI-AVENTIS-2011SA015869

PATIENT
  Age: 76 Year
  Sex: Male
  Weight: 99 kg

DRUGS (11)
  1. IRBESARTAN [Concomitant]
     Route: 048
  2. LASIX [Suspect]
     Route: 048
     Dates: start: 20110209
  3. DRONEDARONE HCL [Suspect]
     Indication: ATRIAL FIBRILLATION
     Route: 048
     Dates: start: 20101111, end: 20110314
  4. SINTROM [Concomitant]
     Dosage: 10MG WEEKLY
  5. DENOREX [Concomitant]
  6. LASIX [Suspect]
     Route: 048
     Dates: end: 20110208
  7. LASIX [Suspect]
     Route: 048
     Dates: end: 20110518
  8. SIMVASTATIN [Concomitant]
     Dates: end: 20101208
  9. METOPROLOL SUCCINATE [Concomitant]
  10. ROSUVASTATIN [Concomitant]
     Route: 048
     Dates: start: 20101009
  11. DOVOBET [Concomitant]
     Dosage: 0.5MG /50 UG/G

REACTIONS (1)
  - TOXIC SKIN ERUPTION [None]
